FAERS Safety Report 6067769-4 (Version None)
Quarter: 2009Q1

REPORT INFORMATION
  Report Type: 
  Country: None (occurrence: None)
  Receive Date: 20090203
  Receipt Date: 20090121
  Transmission Date: 20090719
  Serious: No
  Sender: FDA-Public Use
  Company Number: US025336

PATIENT
  Age: 49 Year
  Sex: Female
  Weight: 71.6683 kg

DRUGS (5)
  1. FENTORA [Suspect]
     Indication: EXTRINSIC VASCULAR COMPRESSION
     Dosage: 800 UG QID BUCCAL
     Route: 002
     Dates: start: 20090112
  2. FENTORA [Suspect]
     Indication: NEOPLASM
     Dosage: 800 UG QID BUCCAL
     Route: 002
     Dates: start: 20090112
  3. FENTORA [Suspect]
     Indication: NERVE COMPRESSION
     Dosage: 800 UG QID BUCCAL
     Route: 002
     Dates: start: 20090112
  4. OXYCONTIN [Concomitant]
  5. PHENERGAN HCL [Concomitant]

REACTIONS (3)
  - DRUG PRESCRIBING ERROR [None]
  - PRODUCT QUALITY ISSUE [None]
  - TREATMENT NONCOMPLIANCE [None]
